FAERS Safety Report 6801794-8 (Version None)
Quarter: 2010Q2

REPORT INFORMATION
  Report Type: 
  Country: None (occurrence: None)
  Receive Date: 20100629
  Receipt Date: 20100621
  Transmission Date: 20101027
  Serious: Yes (Death, Other)
  Sender: FDA-Public Use
  Company Number: PHHY2010US39653

PATIENT
  Sex: Female

DRUGS (4)
  1. RECLAST [Suspect]
     Indication: OSTEOPOROSIS POSTMENOPAUSAL
     Dosage: 5 MG, Q 12 MO
     Route: 042
     Dates: start: 20100513
  2. SEAGUAL [Concomitant]
  3. POTASSIUM CHLORIDE [Concomitant]
     Indication: OEDEMA
     Dosage: 10 MEQ/DAY
     Dates: start: 20090927, end: 20100525
  4. LASIX [Concomitant]
     Indication: OEDEMA
     Dosage: 30 G/DAY
     Dates: start: 20090927, end: 20100525

REACTIONS (4)
  - ASPIRATION [None]
  - DEMENTIA ALZHEIMER'S TYPE [None]
  - DYSPHAGIA [None]
  - GENERAL PHYSICAL HEALTH DETERIORATION [None]
